FAERS Safety Report 15072426 (Version 4)
Quarter: 2019Q1

REPORT INFORMATION
  Report Type: Spontaneous
  Country: JP (occurrence: JP)
  Receive Date: 20180626
  Receipt Date: 20190313
  Transmission Date: 20190417
  Serious: Yes (Hospitalization, Other)
  Sender: FDA-Public Use
  Company Number: JP-AMGEN-JPNSP2018087050

PATIENT
  Age: 36 Year
  Sex: Female

DRUGS (10)
  1. G-LASTA [Suspect]
     Active Substance: PEGFILGRASTIM
     Indication: COLONY STIMULATING FACTOR THERAPY
     Dosage: 3.6 MILLIGRAM
     Route: 058
     Dates: start: 20180602, end: 20180602
  2. EMEND [Concomitant]
     Active Substance: APREPITANT
     Indication: PROPHYLAXIS
     Dosage: 125 MILLIGRAM, QD
     Route: 048
     Dates: start: 20180531, end: 20180531
  3. G-LASTA [Suspect]
     Active Substance: PEGFILGRASTIM
     Dosage: 3.6 MILLIGRAM
     Route: 058
     Dates: start: 20180802, end: 20180802
  4. 5-FU [Suspect]
     Active Substance: FLUOROURACIL
     Indication: BREAST CANCER
     Dosage: 760 MILLIGRAM
     Route: 041
     Dates: start: 20180531, end: 20180531
  5. ISOTONIC SODIUM CHLORIDE SOLUTION [Concomitant]
     Active Substance: SODIUM CHLORIDE
     Indication: BREAST CANCER
     Dosage: 450 MILLILITER
     Route: 042
     Dates: start: 20180531, end: 20180531
  6. ALOXI [Concomitant]
     Active Substance: PALONOSETRON HYDROCHLORIDE
     Indication: PROPHYLAXIS
     Dosage: 0.75 MILLIGRAM
     Route: 042
     Dates: start: 20180531, end: 20180531
  7. DEXART [Concomitant]
     Active Substance: DEXAMETHASONE SODIUM PHOSPHATE
     Indication: PROPHYLAXIS
     Dosage: 3.3 MILLIGRAM
     Route: 042
     Dates: start: 20180531, end: 20180531
  8. EPIRUBICIN [Suspect]
     Active Substance: EPIRUBICIN
     Indication: BREAST CANCER
     Dosage: 150 MILLIGRAM
     Route: 041
     Dates: start: 20180531, end: 20180531
  9. ENDOXAN [CYCLOPHOSPHAMIDE] [Suspect]
     Active Substance: CYCLOPHOSPHAMIDE
     Indication: BREAST CANCER
     Dosage: 760 MILLIGRAM
     Route: 041
     Dates: start: 20180531, end: 20180531
  10. EMEND [Concomitant]
     Active Substance: APREPITANT
     Dosage: 80 MILLIGRAM, QD
     Route: 048
     Dates: start: 20180531, end: 20180601

REACTIONS (3)
  - Thrombocytopenia [Recovered/Resolved]
  - Febrile neutropenia [Recovered/Resolved]
  - Colony stimulating factor therapy [Unknown]

NARRATIVE: CASE EVENT DATE: 20180608
